FAERS Safety Report 13814450 (Version 7)
Quarter: 2020Q3

REPORT INFORMATION
  Report Type: Report from Study
  Country: US (occurrence: US)
  Receive Date: 20170731
  Receipt Date: 20181105
  Transmission Date: 20201104
  Serious: Yes (Hospitalization, Other)
  Sender: FDA-Public Use
  Company Number: US-JNJFOC-20170717589

PATIENT
  Age: 62 Year
  Sex: Female
  Weight: 64.86 kg

DRUGS (4)
  1. ADVIL PM [Concomitant]
     Active Substance: DIPHENHYDRAMINE CITRATE\IBUPROFEN
     Indication: NECK PAIN
     Route: 048
     Dates: start: 2013
  2. GUSELKUMAB [Suspect]
     Active Substance: GUSELKUMAB
     Route: 058
  3. COCONUT OIL [Concomitant]
     Active Substance: COCONUT OIL
     Indication: PSORIASIS
     Route: 061
     Dates: start: 2016
  4. GUSELKUMAB [Suspect]
     Active Substance: GUSELKUMAB
     Indication: PSORIASIS
     Route: 058
     Dates: start: 20170622, end: 20170706

REACTIONS (1)
  - Rash morbilliform [Recovering/Resolving]

NARRATIVE: CASE EVENT DATE: 20170720
